FAERS Safety Report 5894231-1 (Version None)
Quarter: 2008Q3

REPORT INFORMATION
  Report Type: 
  Country: None (occurrence: None)
  Receive Date: 20080923
  Receipt Date: 20080228
  Transmission Date: 20090109
  Serious: No
  Sender: FDA-Public Use
  Company Number: US-ASTRAZENECA-2008UW04230

PATIENT
  Age: 46 Year
  Sex: Male
  Weight: 99.8 kg

DRUGS (2)
  1. SEROQUEL [Suspect]
     Indication: DEPRESSION
     Route: 048
     Dates: start: 20080226
  2. CYMBALTA [Concomitant]

REACTIONS (5)
  - DIZZINESS [None]
  - FEELING DRUNK [None]
  - FEELING HOT [None]
  - NAUSEA [None]
  - PARAESTHESIA [None]
